FAERS Safety Report 23983514 (Version 1)
Quarter: 2024Q2

REPORT INFORMATION
  Report Type: Spontaneous
  Country: US (occurrence: US)
  Receive Date: 20240617
  Receipt Date: 20240617
  Transmission Date: 20240716
  Serious: Yes (Other)
  Sender: FDA-Public Use
  Company Number: US-DRL-USA-LIT/USA/24/0008493

PATIENT
  Age: 62 Year
  Sex: Female

DRUGS (1)
  1. EXEMESTANE [Suspect]
     Active Substance: EXEMESTANE
     Indication: Breast cancer

REACTIONS (2)
  - Disease progression [Unknown]
  - Treatment failure [Unknown]
